FAERS Safety Report 9279308 (Version 2)
Quarter: 2013Q2

REPORT INFORMATION
  Report Type: Spontaneous
  Country: AU (occurrence: AU)
  Receive Date: 20130508
  Receipt Date: 20130510
  Transmission Date: 20140414
  Serious: Yes (Hospitalization, Other)
  Sender: FDA-Public Use
  Company Number: AU-ALEXION PHARMACEUTICALS INC.-A201300947

PATIENT
  Age: 40 Year
  Sex: Female

DRUGS (3)
  1. SOLIRIS 300MG [Suspect]
     Indication: PAROXYSMAL NOCTURNAL HAEMOGLOBINURIA
     Dosage: 900 MG, Q2W
     Route: 042
     Dates: start: 201103
  2. ANTIBIOTICS [Concomitant]
     Indication: PROPHYLAXIS
     Dosage: 6 WEEKS
     Route: 048
  3. ANTIBIOTICS [Concomitant]
     Indication: POSTOPERATIVE CARE

REACTIONS (2)
  - Extravascular haemolysis [Recovering/Resolving]
  - Haemoglobin decreased [Unknown]
